FAERS Safety Report 5677331-0 (Version None)
Quarter: 2008Q1

REPORT INFORMATION
  Report Type: 
  Country: None (occurrence: None)
  Receive Date: 20080320
  Receipt Date: 20080320
  Transmission Date: 20080703
  Serious: Yes (Life-Threatening)
  Sender: FDA-Public Use
  Company Number: None

PATIENT
  Sex: Male
  Weight: 58.0604 kg

DRUGS (1)
  1. ENBREL [Suspect]
     Indication: RHEUMATOID ARTHRITIS
     Dosage: 50 MG EVERY WEEK SQ
     Route: 058

REACTIONS (7)
  - ADENOCARCINOMA [None]
  - ARTHRITIS [None]
  - BONE DISORDER [None]
  - COMPUTERISED TOMOGRAM ABNORMAL [None]
  - METASTASES TO LYMPH NODES [None]
  - PULMONARY MASS [None]
  - SOFT TISSUE DISORDER [None]
